FAERS Safety Report 12961870 (Version 4)
Quarter: 2017Q2

REPORT INFORMATION
  Report Type: Spontaneous
  Country: US (occurrence: US)
  Receive Date: 20161121
  Receipt Date: 20170620
  Transmission Date: 20170830
  Serious: Yes (Hospitalization)
  Sender: FDA-Public Use
  Company Number: US-ACTELION-A-NJ2016-145732

PATIENT
  Age: 60 Year
  Sex: Male
  Weight: 87.53 kg

DRUGS (3)
  1. OPSUMIT [Suspect]
     Active Substance: MACITENTAN
     Indication: PULMONARY HYPERTENSION
     Dosage: 10 MG, QD
     Route: 048
     Dates: start: 20151217
  2. SILDENAFIL. [Concomitant]
     Active Substance: SILDENAFIL
  3. VELETRI [Suspect]
     Active Substance: EPOPROSTENOL
     Indication: PULMONARY HYPERTENSION
     Dosage: 26.8 NG/KG, PER MIN
     Route: 042
     Dates: start: 20151119

REACTIONS (5)
  - Dyspnoea [Unknown]
  - Dyspnoea exertional [Unknown]
  - Pain in jaw [Unknown]
  - Catheter management [Unknown]
  - Pneumonia [Unknown]
